FAERS Safety Report 9423672 (Version 1)
Quarter: 2013Q3

REPORT INFORMATION
  Report Type: Spontaneous
  Country: BR (occurrence: BR)
  Receive Date: 20130727
  Receipt Date: 20130727
  Transmission Date: 20140515
  Serious: Yes (Other)
  Sender: FDA-Public Use
  Company Number: BR-ABBOTT-13X-020-1122983-00

PATIENT
  Age: 47 Year
  Sex: Male
  Weight: 83 kg

DRUGS (5)
  1. DEPAKENE [Suspect]
     Indication: EPILEPSY
     Dosage: 1500 MG DAILY;1 TABLET IN THE MORNING/AFTERNOON/NIGHT
     Route: 048
     Dates: start: 2010
  2. DEPAKENE [Suspect]
  3. TRILEPTAL [Concomitant]
     Indication: EPILEPSY
     Dosage: 900 MG DAILY; 1 TABLET IN THE MORNING/AFTERNOON/NIGHT
     Dates: start: 2003
  4. PHENYTOIN [Concomitant]
     Indication: EPILEPSY
     Route: 048
     Dates: start: 2010
  5. PHENYTOIN [Concomitant]
     Dosage: 2 TABLET DAILY: 1 TABLET IN THE MORNING AND 1 AT NIGHT
     Route: 048

REACTIONS (8)
  - Epilepsy [Recovered/Resolved]
  - Epilepsy [Recovered/Resolved]
  - Convulsion [Unknown]
  - Drug ineffective [Unknown]
  - Somnolence [Unknown]
  - Diplopia [Unknown]
  - Anticonvulsant drug level increased [Unknown]
  - Product quality issue [Unknown]
